FAERS Safety Report 7361807-4 (Version None)
Quarter: 2011Q1

REPORT INFORMATION
  Report Type: 
  Country: None (occurrence: None)
  Receive Date: 20110318
  Receipt Date: 20110311
  Transmission Date: 20110831
  Serious: Yes (Other)
  Sender: FDA-Public Use
  Company Number: US-ELI_LILLY_AND_COMPANY-US201101006799

PATIENT
  Age: 75 Year
  Sex: Female
  Weight: 75.283 kg

DRUGS (8)
  1. LANTUS [Concomitant]
  2. FORTEO [Suspect]
     Indication: OSTEOPOROSIS
     Dosage: 20 UG, DAILY (1/D)
     Route: 058
     Dates: start: 20101025
  3. NOVOLOG [Concomitant]
  4. SIMVASTATIN [Concomitant]
  5. EFFEXOR [Concomitant]
  6. METFORMIN HCL [Concomitant]
  7. LISINOPRIL [Concomitant]
  8. METOPROLOL SUCCINATE [Concomitant]

REACTIONS (1)
  - BREAST CANCER IN SITU [None]
